FAERS Safety Report 19694578 (Version 4)
Quarter: 2022Q1

REPORT INFORMATION
  Report Type: Report from Study
  Country: US (occurrence: US)
  Receive Date: 20210812
  Receipt Date: 20220206
  Transmission Date: 20220423
  Serious: Yes (Other)
  Sender: FDA-Public Use
  Company Number: NVSC2021US179554

PATIENT
  Sex: Female

DRUGS (4)
  1. MAYZENT [Suspect]
     Active Substance: SIPONIMOD
     Indication: Multiple sclerosis
     Dosage: 2 MG, QD
     Route: 048
  2. IMITREX [Concomitant]
     Active Substance: SUMATRIPTAN SUCCINATE
     Indication: Product used for unknown indication
     Route: 065
  3. BOTOX [Concomitant]
     Active Substance: ONABOTULINUMTOXINA
     Indication: Product used for unknown indication
     Route: 065
  4. UNSPECIFIED INGREDIENT [Concomitant]
     Active Substance: UNSPECIFIED INGREDIENT
     Indication: Product used for unknown indication
     Route: 065

REACTIONS (12)
  - Cataract [Unknown]
  - Visual impairment [Unknown]
  - Multiple sclerosis [Unknown]
  - Somnolence [Unknown]
  - Temperature intolerance [Unknown]
  - Bronchitis [Unknown]
  - Renal disorder [Unknown]
  - Fatigue [Unknown]
  - Tremor [Unknown]
  - Hypersensitivity [Unknown]
  - Headache [Unknown]
  - Hypoaesthesia [Unknown]
